FAERS Safety Report 11889113 (Version 1)
Quarter: 2016Q1

REPORT INFORMATION
  Report Type: Spontaneous
  Country: US (occurrence: None)
  Receive Date: 20160104
  Receipt Date: 20160104
  Transmission Date: 20160526
  Serious: No
  Sender: FDA-Public Use
  Company Number: None

PATIENT
  Age: 54 Year
  Sex: Female

DRUGS (6)
  1. GEMZAR [Suspect]
     Active Substance: GEMCITABINE HYDROCHLORIDE
     Indication: UNDIFFERENTIATED SARCOMA
  2. DIFPLATIN [Suspect]
     Active Substance: CISPLATIN
     Indication: UNDIFFERENTIATED SARCOMA
  3. DOXIL [Suspect]
     Active Substance: DOXORUBICIN HYDROCHLORIDE
     Indication: UNDIFFERENTIATED SARCOMA
  4. TAXOL [Suspect]
     Active Substance: PACLITAXEL
     Indication: UNDIFFERENTIATED SARCOMA
  5. TAXOTERE [Concomitant]
     Active Substance: DOCETAXEL
     Indication: UNDIFFERENTIATED SARCOMA
  6. IFOSFAMIZE [Suspect]
     Active Substance: IFOSFAMIDE
     Indication: UNDIFFERENTIATED SARCOMA

REACTIONS (24)
  - Dry eye [None]
  - Stomatitis [None]
  - Blister [None]
  - Feeling abnormal [None]
  - Palmar-plantar erythrodysaesthesia syndrome [None]
  - Skin ulcer [None]
  - Constipation [None]
  - Peripheral swelling [None]
  - Infusion site rash [None]
  - Alopecia [None]
  - Nail discolouration [None]
  - Pyrexia [None]
  - Burning sensation [None]
  - Nail disorder [None]
  - Injection site bruising [None]
  - Infusion site bruising [None]
  - Injection site rash [None]
  - Diarrhoea [None]
  - Neuropathy peripheral [None]
  - Fatigue [None]
  - Anaemia [None]
  - Sensory disturbance [None]
  - Gingival bleeding [None]
  - Dry skin [None]

NARRATIVE: CASE EVENT DATE: 20151231
